FAERS Safety Report 11195352 (Version 1)
Quarter: 2015Q2

REPORT INFORMATION
  Report Type: Spontaneous
  Country: US (occurrence: None)
  Receive Date: 20150615
  Receipt Date: 20150615
  Transmission Date: 20150821
  Serious: No
  Sender: FDA-Public Use
  Company Number: None

PATIENT
  Age: 8 Year
  Sex: Male

DRUGS (4)
  1. METHYLPHENIDATE ER 36MG MALLINCKROFT [Suspect]
     Active Substance: METHYLPHENIDATE HYDROCHLORIDE
     Indication: ATTENTION DEFICIT/HYPERACTIVITY DISORDER
     Route: 048
     Dates: start: 20131128, end: 20131213
  2. FLUORIDE TABLETS [Concomitant]
  3. METHYLPHENIDATE ER (ACTAVIS)? [Concomitant]
  4. METHYLPHENIDATE ER 27MG MALLINCKROFT [Suspect]
     Active Substance: METHYLPHENIDATE HYDROCHLORIDE
     Indication: ATTENTION DEFICIT/HYPERACTIVITY DISORDER
     Route: 048
     Dates: start: 20141211, end: 20150107

REACTIONS (8)
  - Abdominal pain upper [None]
  - Feeling abnormal [None]
  - Crying [None]
  - Insomnia [None]
  - Headache [None]
  - Product quality issue [None]
  - Disturbance in attention [None]
  - Appetite disorder [None]

NARRATIVE: CASE EVENT DATE: 20141211
